FAERS Safety Report 6527720-7 (Version None)
Quarter: 2010Q1

REPORT INFORMATION
  Report Type: 
  Country: None (occurrence: None)
  Receive Date: 20100106
  Receipt Date: 20091228
  Transmission Date: 20100710
  Serious: Yes (Hospitalization)
  Sender: FDA-Public Use
  Company Number: US-BIOGENIDEC-2008BI027883

PATIENT
  Age: 56 Year
  Sex: Male
  Weight: 97 kg

DRUGS (12)
  1. AVONEX [Suspect]
     Indication: MULTIPLE SCLEROSIS
     Route: 030
     Dates: start: 20040301, end: 20091101
  2. ASPIRIN [Concomitant]
  3. XALATAN [Concomitant]
  4. SERTRALINE HCL [Concomitant]
     Indication: DEPRESSION
  5. TOPROL-XL [Concomitant]
  6. VYTORIN [Concomitant]
  7. ACIPHEX [Concomitant]
  8. DYAZIDE [Concomitant]
  9. TIMOLOL MALEATE [Concomitant]
  10. AVAPRO [Concomitant]
  11. METOPROLOL TARTRATE [Concomitant]
  12. ACIPHEX [Concomitant]

REACTIONS (18)
  - ATAXIA [None]
  - BALANCE DISORDER [None]
  - DECREASED VIBRATORY SENSE [None]
  - DIARRHOEA [None]
  - EXTRAOCULAR MUSCLE PARESIS [None]
  - FATIGUE [None]
  - GAIT DISTURBANCE [None]
  - HYPOAESTHESIA [None]
  - INTERVERTEBRAL DISC PROTRUSION [None]
  - MULTIPLE SCLEROSIS RELAPSE [None]
  - MUSCLE SPASTICITY [None]
  - MYELOPATHY [None]
  - MYOCARDIAL INFARCTION [None]
  - NYSTAGMUS [None]
  - PERONEAL NERVE PALSY [None]
  - PULMONARY EMBOLISM [None]
  - THERMOHYPOAESTHESIA [None]
  - VESTIBULAR DISORDER [None]
